FAERS Safety Report 8942858 (Version 2)
Quarter: 2012Q4

REPORT INFORMATION
  Report Type: 
  Country: US (occurrence: US)
  Receive Date: 20121121
  Receipt Date: 20121212
  Transmission Date: 20130627
  Serious: Yes (Death, Hospitalization)
  Sender: FDA-Public Use
  Company Number: US-ASTELLAS-1116485

PATIENT
  Sex: Female

DRUGS (2)
  1. TARCEVA [Suspect]
     Indication: PANCREATIC CARCINOMA
     Route: 048
     Dates: start: 20081024, end: 20090107
  2. GEMCITABINE [Concomitant]
     Indication: PANCREATIC CARCINOMA

REACTIONS (7)
  - Death [Fatal]
  - Disease progression [Unknown]
  - Abdominal pain [Unknown]
  - Nausea [Unknown]
  - Vomiting [Unknown]
  - Rash [Unknown]
  - Diarrhoea [Unknown]
